FAERS Safety Report 5401208-9 (Version None)
Quarter: 2007Q3

REPORT INFORMATION
  Report Type: 
  Country: None (occurrence: None)
  Receive Date: 20070726
  Receipt Date: 20070712
  Transmission Date: 20080115
  Serious: Yes (Death, Life-Threatening, Hospitalization)
  Sender: FDA-Public Use
  Company Number: US020296

PATIENT
  Age: 22 Year
  Sex: Male

DRUGS (3)
  1. PROVIGIL [Suspect]
     Dosage: 6000 MG ONCE ORAL
     Route: 048
     Dates: start: 20070519, end: 20070519
  2. ADDERALL 10 [Suspect]
     Dosage: 50 MG ONCE ORAL
     Route: 048
     Dates: start: 20070519, end: 20070519
  3. ZONEGRAN [Concomitant]

REACTIONS (25)
  - ACUTE RESPIRATORY DISTRESS SYNDROME [None]
  - BACTERIAL INFECTION [None]
  - BLOOD PRESSURE DECREASED [None]
  - BRONCHOPLEURAL FISTULA [None]
  - CARDIAC DISORDER [None]
  - CONVULSION [None]
  - CONVULSIVE THRESHOLD LOWERED [None]
  - ENCEPHALOPATHY [None]
  - GRAND MAL CONVULSION [None]
  - HEPATIC FAILURE [None]
  - HYPOVOLAEMIA [None]
  - ILEUS [None]
  - MECHANICAL VENTILATION [None]
  - MECHANICAL VENTILATION COMPLICATION [None]
  - METABOLIC ACIDOSIS [None]
  - MULTIPLE DRUG OVERDOSE INTENTIONAL [None]
  - NERVOUS SYSTEM DISORDER [None]
  - PNEUMONIA ASPIRATION [None]
  - PNEUMOTHORAX [None]
  - RENAL FAILURE [None]
  - RESPIRATORY FAILURE [None]
  - RESUSCITATION [None]
  - RHABDOMYOLYSIS [None]
  - SINUS TACHYCARDIA [None]
  - STATUS EPILEPTICUS [None]
